FAERS Safety Report 16192285 (Version 1)
Quarter: 2019Q2

REPORT INFORMATION
  Report Type: Spontaneous
  Country: US (occurrence: US)
  Receive Date: 20190412
  Receipt Date: 20190412
  Transmission Date: 20190711
  Serious: Yes (Hospitalization)
  Sender: FDA-Public Use
  Company Number: US-ASCEND THERAPEUTICS-2065755

PATIENT
  Age: 55 Year
  Sex: Female

DRUGS (1)
  1. ESTROGEL [Suspect]
     Active Substance: ESTRADIOL
     Indication: MENOPAUSE
     Route: 062
     Dates: start: 201710, end: 201806

REACTIONS (9)
  - Headache [Recovered/Resolved]
  - Application site pain [Recovered/Resolved]
  - Mood swings [Recovered/Resolved]
  - Product adhesion issue [None]
  - Drug ineffective [None]
  - Nephrolithiasis [Unknown]
  - Wrong technique in product usage process [Recovered/Resolved]
  - Nausea [Recovered/Resolved]
  - Application site erosion [Recovered/Resolved]
